FAERS Safety Report 9749785 (Version 1)
Quarter: 2013Q4

REPORT INFORMATION
  Report Type: Spontaneous
  Country: GR (occurrence: US)
  Receive Date: 20131212
  Receipt Date: 20131212
  Transmission Date: 20140711
  Serious: Yes (Other)
  Sender: FDA-Public Use
  Company Number: US-PFIZER INC-2013352309

PATIENT
  Age: 47 Year
  Sex: Female

DRUGS (13)
  1. CLINDAMYCIN HCL [Suspect]
     Dosage: 600 MG, SINGLE (STAT)
     Route: 042
  2. CLINDAMYCIN HCL [Interacting]
     Dosage: 300 MG, 4 TIMES PER DAY (QID)
  3. COUMADINE [Interacting]
     Dosage: 5 MG, DAILY
  4. VALPROIC ACID [Concomitant]
     Dosage: 250 MG, 4X/DAY
  5. IMURAN [Concomitant]
     Dosage: 50 MG, 3X/DAY
  6. DELTASONE [Concomitant]
     Dosage: 10 MG, DAILY
  7. FUROSEMIDE [Concomitant]
     Dosage: 20 MG, 2X/DAY
  8. CAPOTEN [Concomitant]
     Dosage: 25 MG, 4X/DAY
  9. SYNTHROID [Concomitant]
     Dosage: 0.075 MG, DAILY
  10. AMBIEN [Concomitant]
     Dosage: 10 MG, DAILY
  11. INSULIN [Concomitant]
     Dosage: UNK
  12. HEPARIN [Concomitant]
     Indication: ANTICOAGULANT THERAPY
     Dosage: UNK
  13. IBUPROFEN [Concomitant]
     Indication: DISCOMFORT
     Dosage: 600 MG, UNK

REACTIONS (3)
  - Drug interaction [Unknown]
  - Mouth haemorrhage [Recovered/Resolved]
  - International normalised ratio increased [Unknown]
